FAERS Safety Report 21636394 (Version 5)
Quarter: 2023Q1

REPORT INFORMATION
  Report Type: Report from Study
  Country: US (occurrence: US)
  Receive Date: 20221124
  Receipt Date: 20230309
  Transmission Date: 20230417
  Serious: No
  Sender: FDA-Public Use
  Company Number: US-002147023-NVSC2022US263915

PATIENT
  Sex: Female

DRUGS (1)
  1. COSENTYX [Suspect]
     Active Substance: SECUKINUMAB
     Indication: Psoriatic arthropathy
     Dosage: 150 MG, QW
     Route: 058
     Dates: start: 20221103

REACTIONS (9)
  - Migraine [Recovered/Resolved]
  - Carpal tunnel syndrome [Recovering/Resolving]
  - Migraine [Not Recovered/Not Resolved]
  - Lymphadenopathy [Unknown]
  - Psoriasis [Not Recovered/Not Resolved]
  - Sinusitis [Recovered/Resolved]
  - Headache [Recovered/Resolved]
  - Arthralgia [Unknown]
  - Onychoclasis [Unknown]
